FAERS Safety Report 10241611 (Version 1)
Quarter: 2014Q2

REPORT INFORMATION
  Report Type: Spontaneous
  Country: GB (occurrence: GB)
  Receive Date: 20140617
  Receipt Date: 20140617
  Transmission Date: 20141212
  Serious: Yes (Other)
  Sender: FDA-Public Use
  Company Number: GB-WATSON-2014-13587

PATIENT
  Age: 38 Year
  Sex: Female

DRUGS (2)
  1. DEXAMETHASONE (UNKNOWN) [Suspect]
     Indication: PLASMACYTOMA
     Dosage: UNK
     Route: 065
  2. BORTEZOMIB [Suspect]
     Indication: PLASMACYTOMA
     Dosage: UNK
     Route: 065

REACTIONS (1)
  - Neurotoxicity [Unknown]
